FAERS Safety Report 11926673 (Version 1)
Quarter: 2016Q1

REPORT INFORMATION
  Report Type: Spontaneous
  Country: US (occurrence: US)
  Receive Date: 20160119
  Receipt Date: 20160119
  Transmission Date: 20160526
  Serious: Yes (Other)
  Sender: FDA-Public Use
  Company Number: US-ELI_LILLY_AND_COMPANY-US201601003002

PATIENT
  Sex: Female

DRUGS (12)
  1. LEVEMIR [Concomitant]
     Active Substance: INSULIN DETEMIR
  2. NEXIUM [Concomitant]
     Active Substance: ESOMEPRAZOLE MAGNESIUM
  3. ARICEPT [Concomitant]
     Active Substance: DONEPEZIL HYDROCHLORIDE
  4. LIPITOR [Concomitant]
     Active Substance: ATORVASTATIN CALCIUM
  5. JANUVIA [Concomitant]
     Active Substance: SITAGLIPTIN PHOSPHATE
  6. CHILDRENS TYLENOL [Concomitant]
     Active Substance: ACETAMINOPHEN
  7. NATEGLINIDE. [Concomitant]
     Active Substance: NATEGLINIDE
  8. IRON [Concomitant]
     Active Substance: IRON
  9. TRADJENTA [Concomitant]
     Active Substance: LINAGLIPTIN
  10. PLAVIX [Concomitant]
     Active Substance: CLOPIDOGREL BISULFATE
  11. VITAMIN B12 [Concomitant]
     Active Substance: CYANOCOBALAMIN
  12. HUMALOG [Suspect]
     Active Substance: INSULIN LISPRO
     Indication: TYPE 2 DIABETES MELLITUS
     Dosage: 12 U, TID
     Route: 065
     Dates: start: 2011

REACTIONS (5)
  - Transient ischaemic attack [Unknown]
  - Cerebrovascular accident [Unknown]
  - Paralysis [Unknown]
  - Underdose [Unknown]
  - Brain neoplasm [Unknown]

NARRATIVE: CASE EVENT DATE: 2013
